FAERS Safety Report 8849091 (Version 1)
Quarter: 2012Q4

REPORT INFORMATION
  Report Type: 
  Country: US (occurrence: US)
  Receive Date: 20121019
  Receipt Date: 20121019
  Transmission Date: 20130627
  Serious: Yes (Other)
  Sender: FDA-Public Use
  Company Number: US-JNJFOC-20121006483

PATIENT
  Sex: Female

DRUGS (2)
  1. ORTHO-NOVUM [Suspect]
     Indication: CONTRACEPTION
     Route: 048
     Dates: start: 1999, end: 1999
  2. ORTHO-NOVUM [Suspect]
     Indication: CONTRACEPTION
     Route: 048
     Dates: end: 200901

REACTIONS (15)
  - Hepatitis C [Not Recovered/Not Resolved]
  - Irritable bowel syndrome [Recovered/Resolved]
  - Weight increased [Recovering/Resolving]
  - Dyspepsia [Recovered/Resolved]
  - Therapeutic response unexpected [Unknown]
  - Family stress [None]
  - Death of relative [None]
  - Syncope [None]
  - Fall [None]
  - Weight gain poor [None]
  - Vulvovaginal dryness [None]
  - Vulvovaginal pain [None]
  - Thermal burn [None]
  - Erythema [None]
  - Application site pain [None]
